FAERS Safety Report 4487154-6 (Version None)
Quarter: 2004Q4

REPORT INFORMATION
  Report Type: 
  Country: None (occurrence: None)
  Receive Date: 20041027
  Receipt Date: 20041019
  Transmission Date: 20050328
  Serious: Yes (Life-Threatening)
  Sender: FDA-Public Use
  Company Number: NL-BRISTOL-MYERS SQUIBB COMPANY-12740684

PATIENT
  Age: 34 Year
  Sex: Female

DRUGS (2)
  1. EFAVIRENZ CAPS 200 MG [Suspect]
     Dosage: ONCE DAILY
     Route: 048
     Dates: start: 20040810
  2. SULFAMETHOXAZOLE + TRIMETHOPRIM [Concomitant]

REACTIONS (1)
  - DELIRIUM [None]
